FAERS Safety Report 9285843 (Version 1)
Quarter: 2013Q2

REPORT INFORMATION
  Report Type: Spontaneous
  Country: IT (occurrence: IT)
  Receive Date: 20130513
  Receipt Date: 20130513
  Transmission Date: 20140414
  Serious: Yes (Other)
  Sender: FDA-Public Use
  Company Number: IT-EISAI INC-E7389-03817-SPO-IT

PATIENT
  Age: 60 Year
  Sex: Female

DRUGS (2)
  1. HALAVEN [Suspect]
     Route: 041
     Dates: start: 20130422
  2. HALAVEN [Suspect]
     Indication: BREAST CANCER
     Route: 041
     Dates: start: 20130327, end: 20130327

REACTIONS (3)
  - Ascites [Recovering/Resolving]
  - Abdominal pain [Recovering/Resolving]
  - Diarrhoea [Recovering/Resolving]
